FAERS Safety Report 11044325 (Version 2)
Quarter: 2015Q2

REPORT INFORMATION
  Report Type: Spontaneous
  Country: GB (occurrence: None)
  Receive Date: 20150415
  Receipt Date: 20150505
  Transmission Date: 20150821
  Serious: Yes (Other)
  Sender: FDA-Public Use
  Company Number: 2015-000704

PATIENT
  Age: 61 Year
  Sex: Female

DRUGS (2)
  1. RISEDRONATE (RISEDRONATE SODIUM) UNKNOWN, UNKUNK [Suspect]
     Active Substance: RISEDRONATE SODIUM
     Indication: OSTEOPOROSIS
     Route: 048
     Dates: start: 20140912, end: 20150325
  2. CALCICHEW D3 (CALCIUM CARBONATE, COLECALCIFEROL) [Concomitant]

REACTIONS (6)
  - Abdominal pain upper [None]
  - Musculoskeletal pain [None]
  - Nausea [None]
  - Eczema [None]
  - Lip swelling [None]
  - Type IV hypersensitivity reaction [None]

NARRATIVE: CASE EVENT DATE: 20150327
